FAERS Safety Report 8901206 (Version 1)
Quarter: 2012Q4

REPORT INFORMATION
  Report Type: Report from Study
  Country: JP (occurrence: JP)
  Receive Date: 20121109
  Receipt Date: 20121109
  Transmission Date: 20130627
  Serious: Yes (Other)
  Sender: FDA-Public Use
  Company Number: JP-VERTEX PHARMACEUTICAL INC.-AE-2012-011601

PATIENT
  Age: 63 Year
  Sex: Male

DRUGS (7)
  1. VX-950 (TELAPREVIR) [Suspect]
     Indication: CHRONIC HEPATITIS C
     Dosage: 2250 mg, qd
     Route: 048
     Dates: start: 20120125, end: 20120313
  2. VX-950 (TELAPREVIR) [Suspect]
     Dosage: 1500 mg, qd
     Route: 048
     Dates: start: 20120314, end: 20120328
  3. PEGINTRON                          /01543001/ [Suspect]
     Indication: CHRONIC HEPATITIS C
     Dosage: 1.5 UNK, qw
     Route: 058
     Dates: start: 20120125, end: 20120328
  4. RIBAVIRIN [Suspect]
     Indication: CHRONIC HEPATITIS C
     Dosage: 800 mg, qd
     Route: 048
     Dates: start: 20120125, end: 20120221
  5. RIBAVIRIN [Suspect]
     Dosage: 600 mg, qd
     Route: 048
     Dates: start: 20120222, end: 20120228
  6. RIBAVIRIN [Suspect]
     Dosage: 400 mg, qd
     Route: 048
     Dates: start: 20120229, end: 20120328
  7. MUCOSTA [Concomitant]
     Dosage: 300 mg, qd
     Route: 048
     Dates: start: 20120127, end: 20120416

REACTIONS (7)
  - Rash papular [Recovered/Resolved]
  - Pyrexia [None]
  - Blood uric acid increased [None]
  - Haemoglobin decreased [None]
  - Decreased appetite [None]
  - Pruritus [None]
  - Erythema multiforme [None]
